FAERS Safety Report 12201080 (Version 1)
Quarter: 2016Q1

REPORT INFORMATION
  Report Type: Spontaneous
  Country: US (occurrence: US)
  Receive Date: 20160322
  Receipt Date: 20160322
  Transmission Date: 20160526
  Serious: No
  Sender: FDA-Public Use
  Company Number: US-SA-2015SA078010

PATIENT
  Age: 66 Year
  Sex: Male

DRUGS (1)
  1. NASACORT ALLERGY 24HR [Suspect]
     Active Substance: TRIAMCINOLONE ACETONIDE
     Indication: MULTIPLE ALLERGIES
     Dosage: START DATE: 3 MONTHS AGO
     Route: 045

REACTIONS (4)
  - Myalgia [Recovering/Resolving]
  - Musculoskeletal pain [Recovering/Resolving]
  - Neck pain [Recovering/Resolving]
  - Rash erythematous [Not Recovered/Not Resolved]
